FAERS Safety Report 6999960-4 (Version None)
Quarter: 2010Q3

REPORT INFORMATION
  Report Type: 
  Country: None (occurrence: None)
  Receive Date: 20100920
  Receipt Date: 20100806
  Transmission Date: 20110219
  Serious: Yes (Death, Other)
  Sender: FDA-Public Use
  Company Number: US-BAXTER-2009BH006515

PATIENT
  Age: 23 Year
  Sex: Male

DRUGS (6)
  1. HEPARIN SODIUM INJECTION [Suspect]
     Indication: PROPHYLAXIS
     Route: 042
     Dates: start: 20070608
  2. HEPARIN SODIUM INJECTION [Suspect]
     Indication: INTRAVENOUS CATHETER MANAGEMENT
     Route: 042
     Dates: start: 20070608
  3. HEPARIN SODIUM INJECTION [Suspect]
     Route: 042
     Dates: start: 20071101, end: 20071229
  4. HEPARIN SODIUM INJECTION [Suspect]
     Route: 042
     Dates: start: 20071101, end: 20071229
  5. HEPARIN SODIUM INJECTION [Suspect]
  6. HEPARIN SODIUM INJECTION [Suspect]

REACTIONS (12)
  - ABDOMINAL PAIN [None]
  - DEATH [None]
  - DYSPNOEA [None]
  - HAEMOPTYSIS [None]
  - HYPOTENSION [None]
  - LETHARGY [None]
  - NAUSEA [None]
  - PSEUDOMONAS TEST POSITIVE [None]
  - PULMONARY ALVEOLAR HAEMORRHAGE [None]
  - SWELLING [None]
  - TACHYCARDIA [None]
  - VOMITING [None]
